FAERS Safety Report 8591877-7 (Version None)
Quarter: 2012Q3

REPORT INFORMATION
  Report Type: 
  Country: None (occurrence: None)
  Receive Date: 20120814
  Receipt Date: 20120813
  Transmission Date: 20120928
  Serious: Yes (Hospitalization)
  Sender: FDA-Public Use
  Company Number: PHHY2012FR069847

PATIENT
  Sex: Male

DRUGS (2)
  1. LASIX [Concomitant]
  2. STALEVO 100 [Suspect]
     Indication: PARKINSON'S DISEASE
     Dosage: 7 DF, 200/150/37.5 MG DAILY
     Route: 048
     Dates: start: 20120215

REACTIONS (5)
  - ANAEMIA [None]
  - HYPOTHYROIDISM [None]
  - AGGRESSION [None]
  - GASTRIC ULCER [None]
  - INCOHERENT [None]
